FAERS Safety Report 9686786 (Version 1)
Quarter: 2013Q4

REPORT INFORMATION
  Report Type: Report from Study
  Country: US (occurrence: US)
  Receive Date: 20131113
  Receipt Date: 20131113
  Transmission Date: 20140711
  Serious: Yes (Hospitalization, Disabling)
  Sender: FDA-Public Use
  Company Number: PHEH2013US023659

PATIENT
  Age: 47 Year
  Sex: Female

DRUGS (1)
  1. GILENYA [Suspect]
     Indication: MULTIPLE SCLEROSIS
     Dosage: 0.5 MG, QD
     Route: 048
     Dates: start: 20130814

REACTIONS (4)
  - Muscle spasms [Not Recovered/Not Resolved]
  - Blindness transient [Not Recovered/Not Resolved]
  - Convulsion [Not Recovered/Not Resolved]
  - Eye pain [Not Recovered/Not Resolved]
